FAERS Safety Report 19465136 (Version 5)
Quarter: 2022Q1

REPORT INFORMATION
  Report Type: Spontaneous
  Country: DE (occurrence: DE)
  Receive Date: 20210627
  Receipt Date: 20220127
  Transmission Date: 20220423
  Serious: Yes (Death, Hospitalization)
  Sender: FDA-Public Use
  Company Number: NVSC2021DE142730

PATIENT
  Age: 15 Month
  Sex: Male
  Weight: 9.1 kg

DRUGS (1)
  1. ZOLGENSMA [Suspect]
     Active Substance: ONASEMNOGENE ABEPARVOVEC-XIOI
     Indication: Spinal muscular atrophy
     Dosage: 88.4X10E13, ONCE/SINGLE
     Route: 042
     Dates: start: 20210208

REACTIONS (6)
  - Respiratory arrest [Fatal]
  - Bronchial obstruction [Fatal]
  - Respiratory failure [Fatal]
  - Brain injury [Fatal]
  - Secretion discharge [Fatal]
  - Irregular breathing [Fatal]

NARRATIVE: CASE EVENT DATE: 20210602
